FAERS Safety Report 7727748-5 (Version None)
Quarter: 2011Q3

REPORT INFORMATION
  Report Type: 
  Country: None (occurrence: None)
  Receive Date: 20110902
  Receipt Date: 20110822
  Transmission Date: 20111222
  Serious: Yes (Death, Life-Threatening)
  Sender: FDA-Public Use
  Company Number: JP-GENENTECH-321991

PATIENT
  Sex: Female

DRUGS (8)
  1. RITUXAN [Suspect]
     Indication: NON-HODGKIN'S LYMPHOMA
     Dosage: 50 MG, UNK
     Route: 042
     Dates: start: 20110615
  2. FIRSTCIN [Concomitant]
     Indication: PYREXIA
     Dosage: UNK
     Route: 042
     Dates: start: 20110621, end: 20110703
  3. FAMOTIDINE [Concomitant]
     Indication: PRODUCT USED FOR UNKNOWN INDICATION
     Dosage: UNK
     Route: 048
  4. DEXTROMETHORPHAN HYDROBROMIDE [Concomitant]
     Indication: COUGH
     Dosage: 0.6 UNK, QD
     Route: 048
     Dates: start: 20110620, end: 20110627
  5. PREDNISOLONE [Concomitant]
     Indication: PANCYTOPENIA
     Dosage: UNK
     Route: 048
  6. SULFAMETHOXAZOLE [Concomitant]
     Indication: PRODUCT USED FOR UNKNOWN INDICATION
     Dosage: UNK
     Route: 048
     Dates: start: 20101124
  7. RITUXAN [Suspect]
     Dosage: 480 MG, UNK
     Route: 042
     Dates: start: 20110622
  8. MAGNESIUM OXIDE [Concomitant]
     Indication: PRODUCT USED FOR UNKNOWN INDICATION
     Dosage: 1.5 UNK, QD
     Route: 048

REACTIONS (3)
  - BONE MARROW FAILURE [None]
  - NEUTROPHIL COUNT DECREASED [None]
  - TUMOUR LYSIS SYNDROME [None]
